FAERS Safety Report 8788024 (Version 2)
Quarter: 2015Q2

REPORT INFORMATION
  Report Type: Report from Study
  Country: US (occurrence: US)
  Receive Date: 20120914
  Receipt Date: 20150406
  Transmission Date: 20150821
  Serious: Yes (Death)
  Sender: FDA-Public Use
  Company Number: US-ROCHE-1127610

PATIENT
  Age: 52 Year
  Sex: Female

DRUGS (2)
  1. AVASTIN [Suspect]
     Active Substance: BEVACIZUMAB
     Indication: LUNG NEOPLASM MALIGNANT
     Route: 065
  2. ABRAXANE [Concomitant]
     Active Substance: PACLITAXEL

REACTIONS (1)
  - Death [Fatal]

NARRATIVE: CASE EVENT DATE: 200802
